FAERS Safety Report 5882899-5 (Version None)
Quarter: 2008Q3

REPORT INFORMATION
  Report Type: 
  Country: None (occurrence: None)
  Receive Date: 20080913
  Receipt Date: 20080820
  Transmission Date: 20090109
  Serious: No
  Sender: FDA-Public Use
  Company Number: US-ABBOTT-08P-163-0471850-00

PATIENT
  Sex: Female
  Weight: 93.63 kg

DRUGS (9)
  1. HUMIRA [Suspect]
     Indication: RHEUMATOID ARTHRITIS
     Route: 058
     Dates: start: 20070801
  2. TYLOX [Concomitant]
     Indication: PAIN
     Dosage: EVERY 4-6 HOURS 1-2 PILLS, AS NEEDED
     Route: 048
  3. PRINZIDE [Concomitant]
     Indication: HYPERTENSION
     Dosage: 20/12.5 MG DAILY
     Route: 048
     Dates: start: 20080820
  4. OMEPRAZOLE SODIUM [Concomitant]
     Indication: ABDOMINAL PAIN UPPER
     Route: 048
     Dates: start: 20080501
  5. IBUPROFEN [Concomitant]
     Indication: PAIN
     Dosage: 1-3 TABLETS 800 MG, AS NEEDED
     Route: 048
     Dates: start: 20080520
  6. LORAZEPAM [Concomitant]
     Indication: ANXIETY
     Dosage: ONE TAB AS NEEDED
     Route: 048
     Dates: start: 20080813
  7. LORAZEPAM [Concomitant]
     Indication: INSOMNIA
  8. MORPHINE [Concomitant]
     Indication: PAIN
     Route: 048
  9. TEMAZEPAM [Concomitant]
     Indication: PAIN
     Route: 048

REACTIONS (14)
  - ABDOMINAL PAIN UPPER [None]
  - ANXIETY [None]
  - ARTHRALGIA [None]
  - ASTHENIA [None]
  - BREAST PAIN [None]
  - DIARRHOEA [None]
  - DRUG DOSE OMISSION [None]
  - FATIGUE [None]
  - HYPERTENSION [None]
  - INFLAMMATION [None]
  - INJECTION SITE PAIN [None]
  - INSOMNIA [None]
  - PAIN [None]
  - URINARY TRACT INFECTION [None]
